FAERS Safety Report 17881723 (Version 1)
Quarter: 2020Q2

REPORT INFORMATION
  Report Type: Report from Study
  Country: GT (occurrence: GT)
  Receive Date: 20200610
  Receipt Date: 20200610
  Transmission Date: 20200714
  Serious: Yes (Hospitalization, Other)
  Sender: FDA-Public Use
  Company Number: GT-SA-2020SA147939

PATIENT

DRUGS (2)
  1. IRBESARTAN. [Suspect]
     Active Substance: IRBESARTAN
     Indication: BLOOD PRESSURE ABNORMAL
     Dosage: 1 DF, QD (150 MG)
     Route: 048
     Dates: start: 2015, end: 2019
  2. IRBESARTAN. [Suspect]
     Active Substance: IRBESARTAN
     Dosage: 1 DF, QD (300 MG)
     Route: 048
     Dates: start: 2019

REACTIONS (14)
  - Therapy interrupted [Unknown]
  - Hypersensitivity [Recovered/Resolved]
  - Cough [Recovered/Resolved]
  - Hypertension [Recovering/Resolving]
  - Renal disorder [Recovering/Resolving]
  - Feeling abnormal [Recovering/Resolving]
  - Headache [Recovering/Resolving]
  - Blood creatinine increased [Recovering/Resolving]
  - Pneumonia [Recovered/Resolved]
  - Drug ineffective [Unknown]
  - Intentional overdose [Unknown]
  - Hypertension [Recovering/Resolving]
  - Off label use [Unknown]
  - Intentional product misuse [Unknown]

NARRATIVE: CASE EVENT DATE: 2015
